FAERS Safety Report 7783449-9 (Version None)
Quarter: 2011Q3

REPORT INFORMATION
  Report Type: 
  Country: None (occurrence: None)
  Receive Date: 20110928
  Receipt Date: 20110928
  Transmission Date: 20111222
  Serious: No
  Sender: FDA-Public Use
  Company Number: None

PATIENT
  Age: 48 Year
  Sex: Female
  Weight: 57.606 kg

DRUGS (1)
  1. AVELOX [Suspect]
     Indication: SINUSITIS
     Dosage: 400 MG
     Route: 048
     Dates: start: 20110827, end: 20110902

REACTIONS (11)
  - JOINT STIFFNESS [None]
  - FUNGAL INFECTION [None]
  - PAIN [None]
  - NEUROPATHY PERIPHERAL [None]
  - ABASIA [None]
  - BURNING SENSATION [None]
  - FATIGUE [None]
  - TENDON PAIN [None]
  - JOINT SWELLING [None]
  - PARAESTHESIA [None]
  - SENSORY DISTURBANCE [None]
